FAERS Safety Report 16402605 (Version 1)
Quarter: 2019Q2

REPORT INFORMATION
  Report Type: Spontaneous
  Country: BR (occurrence: BR)
  Receive Date: 20190607
  Receipt Date: 20190607
  Transmission Date: 20190711
  Serious: Yes (Hospitalization, Other)
  Sender: FDA-Public Use
  Company Number: BR-BRISTOL-MYERS SQUIBB COMPANY-BMS-2019-053169

PATIENT
  Age: 70 Year
  Sex: Male

DRUGS (4)
  1. NIVOLUMAB [Suspect]
     Active Substance: NIVOLUMAB
     Indication: PRODUCT USED FOR UNKNOWN INDICATION
     Dosage: 6 MILLIGRAM/KILOGRAM, EVERY 15 DAYS, THEN EVERY 28 DAYS
     Route: 065
     Dates: start: 20190124, end: 20190321
  2. NIVOLUMAB [Suspect]
     Active Substance: NIVOLUMAB
     Indication: PRODUCT USED FOR UNKNOWN INDICATION
     Dosage: 3 MILLIGRAM/KILOGRAM, EVERY 15 DAYS, THEN EVERY 28 DAYS
     Route: 065
     Dates: start: 20181004
  3. NIVOLUMAB [Suspect]
     Active Substance: NIVOLUMAB
     Indication: CLEAR CELL CARCINOMA OF CERVIX
     Dosage: 3 MILLIGRAM/KILOGRAM
     Route: 065
     Dates: start: 20180712
  4. IPILIMUMAB [Suspect]
     Active Substance: IPILIMUMAB
     Indication: CLEAR CELL CARCINOMA OF CERVIX
     Dosage: 1 MILLIGRAM/KILOGRAM
     Route: 065
     Dates: start: 20180712

REACTIONS (7)
  - Hypotension [Unknown]
  - Somnolence [Unknown]
  - Malaise [Unknown]
  - Dehydration [Unknown]
  - Product use in unapproved indication [Unknown]
  - Tachycardia [Unknown]
  - Diabetic metabolic decompensation [Unknown]

NARRATIVE: CASE EVENT DATE: 20190305
